FAERS Safety Report 18292686 (Version 2)
Quarter: 2020Q3

REPORT INFORMATION
  Report Type: Report from Study
  Country: FR (occurrence: FR)
  Receive Date: 20200921
  Receipt Date: 20200930
  Transmission Date: 20201103
  Serious: Yes (Death)
  Sender: FDA-Public Use
  Company Number: FR-CELGENEUS-FRA-20200904740

PATIENT
  Age: 60 Year
  Sex: Female
  Weight: 63 kg

DRUGS (5)
  1. ISTODAX [Suspect]
     Active Substance: ROMIDEPSIN
     Indication: ANGIOIMMUNOBLASTIC T-CELL LYMPHOMA
     Dosage: 14 MILLIGRAM/SQ. METER
     Route: 041
     Dates: start: 20191129
  2. ISTODAX [Suspect]
     Active Substance: ROMIDEPSIN
     Dosage: 14 MILLIGRAM/SQ. METER
     Route: 041
     Dates: start: 20191227, end: 20191227
  3. GEMCITABINE. [Concomitant]
     Active Substance: GEMCITABINE
     Indication: ANGIOIMMUNOBLASTIC T-CELL LYMPHOMA
     Route: 065
  4. BENDAMUSTINE [Concomitant]
     Active Substance: BENDAMUSTINE
     Indication: ANGIOIMMUNOBLASTIC T-CELL LYMPHOMA
     Route: 065
  5. CHOP [Concomitant]
     Active Substance: CYCLOPHOSPHAMIDE\DOXORUBICIN\PREDNISONE\VINCRISTINE
     Indication: ANGIOIMMUNOBLASTIC T-CELL LYMPHOMA
     Route: 065

REACTIONS (1)
  - Angioimmunoblastic T-cell lymphoma [Fatal]
